FAERS Safety Report 8960127 (Version 1)
Quarter: 2012Q4

REPORT INFORMATION
  Report Type: 
  Country: US (occurrence: US)
  Receive Date: 20121212
  Receipt Date: 20121212
  Transmission Date: 20130627
  Serious: No
  Sender: FDA-Public Use
  Company Number: US-MYLANLABS-2012S1019661

PATIENT
  Age: 58 Year
  Sex: Male
  Weight: 79.38 kg

DRUGS (7)
  1. CLOPIDOGREL TABLETS USP [Suspect]
     Indication: CORONARY ARTERIAL STENT INSERTION
     Route: 048
     Dates: start: 20120810, end: 20120916
  2. ASA [Concomitant]
     Route: 048
  3. ATENOLOL [Concomitant]
     Indication: HEART RATE INCREASED
     Route: 048
  4. ROSUVASTATIN [Concomitant]
     Indication: BLOOD CHOLESTEROL INCREASED
  5. CITALOPRAM HYDROBROMIDE [Concomitant]
     Indication: DEPRESSION
  6. ALPRAZOLAM [Concomitant]
     Indication: ANXIETY
     Route: 048
  7. MVI [Concomitant]
     Route: 048

REACTIONS (3)
  - Angina pectoris [Recovered/Resolved]
  - Palpitations [Recovered/Resolved]
  - Headache [Recovered/Resolved]
